FAERS Safety Report 7509767-7 (Version None)
Quarter: 2011Q2

REPORT INFORMATION
  Report Type: 
  Country: None (occurrence: None)
  Receive Date: 20110519
  Receipt Date: 20110505
  Transmission Date: 20111010
  Serious: Yes (Hospitalization)
  Sender: FDA-Public Use
  Company Number: 2011MA005447

PATIENT
  Age: 73 Year
  Sex: Female

DRUGS (3)
  1. METOPROLOL SUCCINATE [Concomitant]
  2. HYDROCHLOROTHIAZIDE [Concomitant]
  3. VENLAFAXINE HYDROCHLORIDE [Suspect]

REACTIONS (10)
  - DELUSION [None]
  - DEPRESSION [None]
  - HYPONATRAEMIA [None]
  - PSYCHOTIC BEHAVIOUR [None]
  - COGNITIVE DISORDER [None]
  - FATIGUE [None]
  - DISORIENTATION [None]
  - HYPERGLYCAEMIA [None]
  - DISEASE RECURRENCE [None]
  - AGGRESSION [None]
